FAERS Safety Report 7783598-5 (Version None)
Quarter: 2011Q3

REPORT INFORMATION
  Report Type: 
  Country: None (occurrence: None)
  Receive Date: 20110928
  Receipt Date: 20110922
  Transmission Date: 20111222
  Serious: Yes (Death, Life-Threatening, Hospitalization)
  Sender: FDA-Public Use
  Company Number: CN-GENZYME-THYM-1002783

PATIENT
  Age: 10 Year
  Sex: Male
  Weight: 30 kg

DRUGS (3)
  1. THYMOGLOBULIN [Suspect]
     Indication: APLASTIC ANAEMIA
     Dosage: 3.75 MG/KG, QD
     Route: 042
     Dates: start: 20110825, end: 20110827
  2. MEDROL [Concomitant]
     Indication: PRODUCT USED FOR UNKNOWN INDICATION
     Dosage: UNK
     Route: 065
     Dates: start: 20110823, end: 20110921
  3. THYMOGLOBULIN [Suspect]
     Dosage: 3.75 MG/KG, QD
     Route: 042
     Dates: start: 20110831, end: 20110901

REACTIONS (3)
  - HYPERTENSION [None]
  - MOUTH ULCERATION [None]
  - GASTROINTESTINAL HAEMORRHAGE [None]
